FAERS Safety Report 25081382 (Version 1)
Quarter: 2025Q1

REPORT INFORMATION
  Report Type: Spontaneous
  Country: US (occurrence: US)
  Receive Date: 20250316
  Receipt Date: 20250316
  Transmission Date: 20250409
  Serious: Yes (Other)
  Sender: GLENMARK
  Company Number: US-GLENMARK PHARMACEUTICALS-2025GMK098498

PATIENT
  Age: 55 Year
  Sex: Male

DRUGS (2)
  1. LITHIUM [Suspect]
     Active Substance: LITHIUM
     Indication: Schizoaffective disorder
     Dosage: 300 MILLIGRAM, BID
     Route: 065
  2. LITHIUM [Suspect]
     Active Substance: LITHIUM
     Dosage: 150 MILLIGRAM, BID
     Route: 065

REACTIONS (10)
  - Hypernatraemia [Recovered/Resolved]
  - Nephrogenic diabetes insipidus [Recovered/Resolved]
  - Hyperchloraemia [Recovered/Resolved]
  - Blood creatinine increased [Recovered/Resolved]
  - Blood creatine phosphokinase increased [Recovered/Resolved]
  - Hypercalcaemia [Recovered/Resolved]
  - Calcium ionised increased [Recovered/Resolved]
  - Dehydration [Recovered/Resolved]
  - Treatment noncompliance [Unknown]
  - Drug level below therapeutic [Unknown]
